FAERS Safety Report 13349288 (Version 2)
Quarter: 2018Q2

REPORT INFORMATION
  Report Type: Spontaneous
  Country: US (occurrence: US)
  Receive Date: 20170320
  Receipt Date: 20180417
  Transmission Date: 20180711
  Serious: No
  Sender: FDA-Public Use
  Company Number: US-TEVA-734299ACC

PATIENT
  Sex: Male

DRUGS (5)
  1. ATENOLOL. [Suspect]
     Active Substance: ATENOLOL
  2. ATENOLOL. [Suspect]
     Active Substance: ATENOLOL
     Indication: HYPERTENSION
  3. DOXYCYCLINE. [Concomitant]
     Active Substance: DOXYCYCLINE
  4. METFORMIN [Concomitant]
     Active Substance: METFORMIN HYDROCHLORIDE
  5. LISINOPRIL. [Concomitant]
     Active Substance: LISINOPRIL

REACTIONS (4)
  - Product substitution issue [Unknown]
  - Drug ineffective [Unknown]
  - Blood pressure increased [Recovered/Resolved]
  - Adverse event [Unknown]
